FAERS Safety Report 5378565-5 (Version None)
Quarter: 2007Q3

REPORT INFORMATION
  Report Type: 
  Country: None (occurrence: None)
  Receive Date: 20070702
  Receipt Date: 20070702
  Transmission Date: 20080115
  Serious: Yes (Life-Threatening, Hospitalization)
  Sender: FDA-Public Use
  Company Number: None

PATIENT
  Age: 57 Year
  Sex: Male

DRUGS (2)
  1. VANCOMYCIN [Suspect]
     Indication: OSTEOMYELITIS
     Dosage: 2000MG BID IV
     Route: 042
     Dates: start: 20070620, end: 20070623
  2. PIPERACILLIN AND TAZOBACTAM [Suspect]
     Dosage: 3.375GM QID IV
     Route: 042

REACTIONS (2)
  - INCORRECT DOSE ADMINISTERED [None]
  - RENAL FAILURE ACUTE [None]
